FAERS Safety Report 7319644-2 (Version None)
Quarter: 2011Q1

REPORT INFORMATION
  Report Type: 
  Country: None (occurrence: None)
  Receive Date: 20110228
  Receipt Date: 20100628
  Transmission Date: 20110831
  Serious: No
  Sender: FDA-Public Use
  Company Number: A0867426A

PATIENT
  Age: 26 Year
  Sex: Female

DRUGS (2)
  1. LAMICTAL [Suspect]
     Dosage: 100MG TWICE PER DAY
     Route: 048
     Dates: start: 20100501
  2. KLONOPIN [Concomitant]

REACTIONS (4)
  - AMENORRHOEA [None]
  - RASH VESICULAR [None]
  - INSOMNIA [None]
  - RASH [None]
